FAERS Safety Report 23787300 (Version 1)
Quarter: 2024Q2

REPORT INFORMATION
  Report Type: Report from Study
  Country: US (occurrence: US)
  Receive Date: 20240426
  Receipt Date: 20240426
  Transmission Date: 20240716
  Serious: Yes (Other)
  Sender: FDA-Public Use
  Company Number: US-ARGENX-2024-ARGX-US001259

PATIENT

DRUGS (1)
  1. VYVGART [Suspect]
     Active Substance: EFGARTIGIMOD ALFA-FCAB
     Indication: Myasthenia gravis
     Dosage: UNK
     Route: 042

REACTIONS (12)
  - Kidney infection [Recovering/Resolving]
  - Procedural nausea [Unknown]
  - Procedural headache [Unknown]
  - Asthenia [Recovered/Resolved]
  - Sinus disorder [Unknown]
  - Myasthenia gravis [Unknown]
  - Diarrhoea [Unknown]
  - Diarrhoea [Recovering/Resolving]
  - Respiratory disorder [Recovering/Resolving]
  - Dehydration [Recovering/Resolving]
  - Dyspnoea [Unknown]
  - Urinary tract infection [Unknown]

NARRATIVE: CASE EVENT DATE: 20240301
